FAERS Safety Report 10162477 (Version 2)
Quarter: 2014Q2

REPORT INFORMATION
  Report Type: Spontaneous
  Country: DE (occurrence: None)
  Receive Date: 20140507
  Receipt Date: 20140512
  Transmission Date: 20141212
  Serious: Yes (Other)
  Sender: FDA-Public Use
  Company Number: AUR-APL-2014-05222

PATIENT
  Age: 1 Day
  Sex: Female
  Weight: 2.32 kg

DRUGS (3)
  1. BISOPROLOL [Suspect]
     Indication: HYPERTENSION
     Route: 064
     Dates: start: 20121203, end: 20130909
  2. FOLIO (FOLIO) [Concomitant]
  3. L-THYROXIN (LEVOTHYROXINE SODIUM) [Concomitant]

REACTIONS (3)
  - Foetal exposure during pregnancy [None]
  - Small for dates baby [None]
  - Maternal drugs affecting foetus [None]
